FAERS Safety Report 5291341-7 (Version None)
Quarter: 2007Q2

REPORT INFORMATION
  Report Type: 
  Country: None (occurrence: None)
  Receive Date: 20070409
  Receipt Date: 20070330
  Transmission Date: 20071010
  Serious: Yes (Hospitalization, Other)
  Sender: FDA-Public Use
  Company Number: US-MERCK-0601USA02830

PATIENT
  Age: 76 Year
  Sex: Male

DRUGS (5)
  1. FOSAMAX [Suspect]
     Indication: OSTEOPOROSIS
     Route: 048
     Dates: start: 20020101, end: 20030101
  2. FOSAMAX [Suspect]
     Indication: OSTEOPENIA
     Route: 048
     Dates: start: 20020101, end: 20030101
  3. CRESTOR [Concomitant]
     Route: 065
  4. [THERAPY UNSPECIFIED] [Concomitant]
     Route: 065
  5. ZOMETA [Concomitant]
     Route: 065
     Dates: start: 20031101

REACTIONS (13)
  - ARTHROPATHY [None]
  - BLOOD CREATININE INCREASED [None]
  - CHOLELITHIASIS [None]
  - DYSURIA [None]
  - EPIDERMOLYSIS [None]
  - HEPATIC CYST [None]
  - OSTEOMYELITIS [None]
  - OSTEONECROSIS [None]
  - RENAL ATROPHY [None]
  - RENAL CYST [None]
  - RENAL PAIN [None]
  - RIB FRACTURE [None]
  - ULCER [None]
